FAERS Safety Report 8966372 (Version 2)
Quarter: 2013Q1

REPORT INFORMATION
  Report Type: Spontaneous
  Country: US (occurrence: None)
  Receive Date: 20121129
  Receipt Date: 20121211
  Transmission Date: 20140127
  Serious: Yes (Hospitalization)
  Sender: FDA-Public Use
  Company Number: 2012PROUSA02291

PATIENT
  Age: 80 Year
  Sex: Male
  Weight: 83 kg

DRUGS (6)
  1. PROVENGE (SIPULEUCEL-T) SUSPENSION, 250ML [Suspect]
     Indication: PROSTATE CANCER METASTATIC
     Route: 042
     Dates: start: 20121022, end: 20121022
  2. MULTIVITAMIN (VITAMINS NOS) [Concomitant]
  3. XGEVA (DENOSUMAB) [Concomitant]
  4. LUPRON (LEUPRORELIN ACETATE) [Concomitant]
  5. BENADRYL (DIPHENHYDRAMINE HYDROCHLORIDE) [Concomitant]
  6. LISINOPRIL (LISINOPRIL) [Concomitant]

REACTIONS (10)
  - Hypotension [None]
  - Renal failure acute [None]
  - Fluid overload [None]
  - Generalised oedema [None]
  - Urinary tract obstruction [None]
  - Respiratory failure [None]
  - Urinary tract infection staphylococcal [None]
  - Asthenia [None]
  - Pleural effusion [None]
  - Pneumonia [None]
